FAERS Safety Report 4501922-3 (Version None)
Quarter: 2004Q4

REPORT INFORMATION
  Report Type: 
  Country: None (occurrence: None)
  Receive Date: 20041109
  Receipt Date: 20041026
  Transmission Date: 20050328
  Serious: Yes (Hospitalization)
  Sender: FDA-Public Use
  Company Number: 2004241762DZ

PATIENT
  Age: 33 Year
  Sex: Female

DRUGS (1)
  1. SOLU-MEDROL [Suspect]
     Indication: RESPIRATORY DISORDER
     Dosage: 120 MG, SINGLE, IV
     Route: 042
     Dates: start: 20041024, end: 20041024

REACTIONS (3)
  - DYSPNOEA [None]
  - ERYTHROSIS [None]
  - HOT FLUSH [None]
